FAERS Safety Report 5866931-0 (Version None)
Quarter: 2008Q3

REPORT INFORMATION
  Report Type: 
  Country: None (occurrence: None)
  Receive Date: 20080902
  Receipt Date: 20080825
  Transmission Date: 20090109
  Serious: Yes (Other)
  Sender: FDA-Public Use
  Company Number: US-BAYER-200813514BCC

PATIENT
  Age: 79 Year
  Sex: Female
  Weight: 91 kg

DRUGS (8)
  1. ASPIRIN [Suspect]
     Indication: CEREBROVASCULAR ACCIDENT PROPHYLAXIS
     Dosage: TOTAL DAILY DOSE: 81 MG  UNIT DOSE: 81 MG
     Route: 048
     Dates: end: 20070701
  2. AMLODIPINE [Concomitant]
  3. LOVENOX [Concomitant]
  4. NAMENDA [Concomitant]
  5. ARICEPT [Concomitant]
  6. SERTRALINE [Concomitant]
  7. ZYRTEC [Concomitant]
  8. LUNESTA [Concomitant]

REACTIONS (2)
  - MOTOR DYSFUNCTION [None]
  - TRANSIENT ISCHAEMIC ATTACK [None]
